FAERS Safety Report 4610423-3 (Version None)
Quarter: 2005Q1

REPORT INFORMATION
  Report Type: 
  Country: None (occurrence: None)
  Receive Date: 20050314
  Receipt Date: 20050310
  Transmission Date: 20050727
  Serious: Yes (Hospitalization, Other)
  Sender: FDA-Public Use
  Company Number: USA-2002-0000790

PATIENT
  Age: 57 Year
  Sex: Male
  Weight: 93.9 kg

DRUGS (9)
  1. OXYCONTIN [Suspect]
     Indication: PAIN
     Dosage: SEE TEXT, ORAL
     Route: 048
     Dates: start: 19991025, end: 20010618
  2. CELEBREX [Concomitant]
  3. ACCUPRIL [Concomitant]
  4. CELEXA [Concomitant]
  5. COUMADIN [Concomitant]
  6. AMBIEN [Concomitant]
  7. ZANAFLEX [Concomitant]
  8. PHYTONADIONE [Concomitant]
  9. KLONOPIN [Concomitant]

REACTIONS (39)
  - ACTIVATED PARTIAL THROMBOPLASTIN TIME PROLONGED [None]
  - ANAEMIA [None]
  - ANXIETY [None]
  - ARTHRALGIA [None]
  - BACK PAIN [None]
  - BURNING SENSATION [None]
  - CATARACT [None]
  - CONTUSION [None]
  - DEHYDRATION [None]
  - DEPRESSION [None]
  - DIARRHOEA [None]
  - DRUG DEPENDENCE [None]
  - DRUG INEFFECTIVE [None]
  - ECCHYMOSIS [None]
  - EMOTIONAL DISTRESS [None]
  - EPISTAXIS [None]
  - FALL [None]
  - GASTROOESOPHAGEAL REFLUX DISEASE [None]
  - HAEMATOMA [None]
  - HYPERCOAGULATION [None]
  - HYPOAESTHESIA [None]
  - INADEQUATE ANALGESIA [None]
  - INJURY [None]
  - INTERNATIONAL NORMALISED RATIO INCREASED [None]
  - MENTAL DISORDER [None]
  - NASAL CONGESTION [None]
  - PAIN [None]
  - PAIN IN EXTREMITY [None]
  - PARAESTHESIA [None]
  - PHARYNGITIS [None]
  - PHARYNGOLARYNGEAL PAIN [None]
  - POST PROCEDURAL PAIN [None]
  - PROTHROMBIN TIME PROLONGED [None]
  - REFUSAL OF TREATMENT BY PATIENT [None]
  - RETINAL HAEMORRHAGE [None]
  - ROAD TRAFFIC ACCIDENT [None]
  - TREATMENT NONCOMPLIANCE [None]
  - VIRAL INFECTION [None]
  - VISUAL ACUITY REDUCED [None]
